FAERS Safety Report 5492235-4 (Version None)
Quarter: 2007Q4

REPORT INFORMATION
  Report Type: 
  Country: None (occurrence: None)
  Receive Date: 20071022
  Receipt Date: 20071009
  Transmission Date: 20080405
  Serious: Yes (Other)
  Sender: FDA-Public Use
  Company Number: US-ROCHE-513673

PATIENT
  Age: 55 Year
  Sex: Female

DRUGS (2)
  1. BONIVA [Suspect]
     Indication: OSTEOPENIA
     Route: 048
     Dates: start: 20070701, end: 20070801
  2. LISINOPRIL [Concomitant]
     Indication: POST-TRAUMATIC STRESS DISORDER

REACTIONS (9)
  - ABDOMINAL DISCOMFORT [None]
  - BLOOD CALCIUM INCREASED [None]
  - FAILURE OF IMPLANT [None]
  - GINGIVAL BLEEDING [None]
  - GINGIVAL DISCOLOURATION [None]
  - GINGIVITIS [None]
  - IMPLANT SITE INFLAMMATION [None]
  - ISCHAEMIA [None]
  - PAIN IN JAW [None]
